FAERS Safety Report 13918442 (Version 2)
Quarter: 2017Q4

REPORT INFORMATION
  Report Type: Report from Study
  Country: CO (occurrence: CO)
  Receive Date: 20170829
  Receipt Date: 20171005
  Transmission Date: 20180320
  Serious: Yes (Death, Hospitalization, Other)
  Sender: FDA-Public Use
  Company Number: CO-ACTELION-A-US2017-158791

PATIENT
  Age: 76 Year
  Sex: Female

DRUGS (3)
  1. VENTAVIS [Suspect]
     Active Substance: ILOPROST
     Indication: PULMONARY ARTERIAL HYPERTENSION
     Dosage: 4 DF, QD
     Route: 055
     Dates: start: 20170215, end: 20170630
  2. IRON [Concomitant]
     Active Substance: IRON
     Indication: HAEMOGLOBIN DECREASED
  3. ADEMPAS [Suspect]
     Active Substance: RIOCIGUAT
     Indication: PULMONARY HYPERTENSION
     Dosage: UNK
     Route: 048
     Dates: start: 20170702

REACTIONS (9)
  - Oedema peripheral [Not Recovered/Not Resolved]
  - Inappropriate schedule of drug administration [Unknown]
  - Haemoglobin decreased [Recovering/Resolving]
  - Pneumonia [Fatal]
  - Drug ineffective [Unknown]
  - Cardiac failure [Fatal]
  - Pulmonary haematoma [Fatal]
  - Dyspnoea [Not Recovered/Not Resolved]
  - Intra-abdominal haematoma [Fatal]
